FAERS Safety Report 8399962-X (Version None)
Quarter: 2012Q2

REPORT INFORMATION
  Report Type: 
  Country: None (occurrence: None)
  Receive Date: 20120531
  Receipt Date: 20120521
  Transmission Date: 20120825
  Serious: Yes (Other)
  Sender: FDA-Public Use
  Company Number: US-BAYER-2012-050877

PATIENT
  Age: 84 Year
  Sex: Female
  Weight: 50 kg

DRUGS (5)
  1. ASPIRIN [Concomitant]
     Indication: ISCHAEMIC HEART DISEASE PROPHYLAXIS
  2. ALEVE (CAPLET) [Suspect]
     Dosage: 1 DF, UNK
     Route: 048
     Dates: start: 20120514, end: 20120516
  3. VITAMIN TAB [Concomitant]
  4. SYNTHROID [Concomitant]
  5. LIPITOR [Concomitant]

REACTIONS (1)
  - RECTAL HAEMORRHAGE [None]
